FAERS Safety Report 25902892 (Version 3)
Quarter: 2025Q4

REPORT INFORMATION
  Report Type: Other
  Country: EU (occurrence: EU)
  Receive Date: 20251009
  Receipt Date: 20251026
  Transmission Date: 20260118
  Serious: Yes (Hospitalization)
  Sender: AIRGAS
  Company Number: EU-ALSI-2025000270

PATIENT
  Age: 43 Year
  Sex: Male

DRUGS (1)
  1. NITROUS OXIDE [Suspect]
     Active Substance: NITROUS OXIDE
     Indication: Analgesic therapy

REACTIONS (5)
  - Ischaemic stroke [Unknown]
  - Hyperhomocysteinaemia [Recovered/Resolved]
  - Vitamin B12 deficiency [Recovered/Resolved]
  - Ataxia [Unknown]
  - Neuropathy peripheral [Unknown]
